FAERS Safety Report 9207711 (Version 1)
Quarter: 2013Q2

REPORT INFORMATION
  Report Type: Spontaneous
  Country: CA (occurrence: CA)
  Receive Date: 20130403
  Receipt Date: 20130403
  Transmission Date: 20140414
  Serious: Yes (Death)
  Sender: FDA-Public Use
  Company Number: CA-AMGEN-CANSP2013021985

PATIENT
  Age: 78 Year
  Sex: 0

DRUGS (2)
  1. SENSIPAR [Suspect]
     Indication: HYPERPARATHYROIDISM SECONDARY
     Dosage: UNK
     Dates: start: 20101107
  2. SENSIPAR [Suspect]

REACTIONS (1)
  - Death [Fatal]
